FAERS Safety Report 7952028-2 (Version None)
Quarter: 2011Q4

REPORT INFORMATION
  Report Type: 
  Country: None (occurrence: None)
  Receive Date: 20111201
  Receipt Date: 20111125
  Transmission Date: 20120403
  Serious: Yes (Life-Threatening, Hospitalization, Other)
  Sender: FDA-Public Use
  Company Number: JP-MEDIMMUNE-MEDI-0014009

PATIENT
  Sex: Female

DRUGS (3)
  1. FERRIC PYROPHOSPHATE, SOLUBLE [Concomitant]
     Route: 048
     Dates: start: 20100927
  2. SYNAGIS [Suspect]
     Route: 030
     Dates: start: 20111116, end: 20111116
  3. DIGOXIN [Concomitant]
     Indication: CARDIAC FAILURE
     Route: 048
     Dates: start: 20100603

REACTIONS (3)
  - CARDIOPULMONARY FAILURE [None]
  - CYANOSIS [None]
  - ANAPHYLACTIC REACTION [None]
